FAERS Safety Report 4575283-8 (Version None)
Quarter: 2005Q1

REPORT INFORMATION
  Report Type: 
  Country: None (occurrence: None)
  Receive Date: 20050209
  Receipt Date: 20050126
  Transmission Date: 20050727
  Serious: Yes (Hospitalization)
  Sender: FDA-Public Use
  Company Number: 200510638US

PATIENT
  Sex: Female
  Weight: 62 kg

DRUGS (8)
  1. DOCETAXEL [Suspect]
     Indication: NON-SMALL CELL LUNG CANCER
     Route: 042
     Dates: start: 20040720, end: 20040727
  2. GEMZAR [Suspect]
     Indication: NON-SMALL CELL LUNG CANCER
     Route: 042
     Dates: start: 20040720, end: 20040727
  3. INDAPAMIDE [Concomitant]
     Indication: HYPERTENSION
     Dates: start: 20010101
  4. TOPROL-XL [Concomitant]
     Indication: HYPERTENSION
     Dates: start: 20010101
  5. THEOPHYLLINE [Concomitant]
     Indication: CHRONIC OBSTRUCTIVE PULMONARY DISEASE
  6. ALBUTEROL [Concomitant]
     Indication: ASTHMA
  7. ALLEGRA [Concomitant]
     Indication: MULTIPLE ALLERGIES
     Dosage: DOSE: 1 TAB
  8. PREDNISONE [Concomitant]

REACTIONS (7)
  - ABDOMINAL PAIN [None]
  - DIARRHOEA [None]
  - FEBRILE NEUTROPENIA [None]
  - HYPONATRAEMIA [None]
  - KLEBSIELLA INFECTION [None]
  - NAUSEA [None]
  - URINARY TRACT INFECTION BACTERIAL [None]
